FAERS Safety Report 16239641 (Version 1)
Quarter: 2019Q2

REPORT INFORMATION
  Report Type: Spontaneous
  Country: DE (occurrence: DE)
  Receive Date: 20190425
  Receipt Date: 20190425
  Transmission Date: 20190711
  Serious: Yes (Other)
  Sender: FDA-Public Use
  Company Number: DE-JNJFOC-20190425672

PATIENT
  Age: 74 Year
  Sex: Female

DRUGS (1)
  1. IMBRUVICA [Suspect]
     Active Substance: IBRUTINIB
     Indication: CHRONIC LYMPHOCYTIC LEUKAEMIA
     Route: 048

REACTIONS (8)
  - Haemoglobin decreased [Unknown]
  - Onychoclasis [Unknown]
  - Insomnia [Unknown]
  - Hair growth abnormal [Unknown]
  - Muscle spasms [Unknown]
  - Drug ineffective [Unknown]
  - Gallbladder operation [Unknown]
  - Nail growth abnormal [Unknown]
